FAERS Safety Report 4806874-4 (Version None)
Quarter: 2005Q4

REPORT INFORMATION
  Report Type: 
  Country: None (occurrence: None)
  Receive Date: 20051020
  Receipt Date: 20051020
  Transmission Date: 20060501
  Serious: Yes (Life-Threatening)
  Sender: FDA-Public Use
  Company Number: None

PATIENT
  Age: 75 Year
  Sex: Male
  Weight: 70.7611 kg

DRUGS (2)
  1. CYTARABINE [Suspect]
     Indication: ACUTE MYELOID LEUKAEMIA
     Dosage: 180MG  CONTINUOUS IV
     Route: 042
     Dates: start: 20051010, end: 20051016
  2. CYTARABINE [Suspect]
     Indication: ACUTE MYELOID LEUKAEMIA
     Dosage: 40MG  QD  IV
     Route: 042
     Dates: start: 20051011, end: 20051015

REACTIONS (1)
  - FEBRILE NEUTROPENIA [None]
